FAERS Safety Report 15586527 (Version 1)
Quarter: 2018Q4

REPORT INFORMATION
  Report Type: Spontaneous
  Country: US (occurrence: US)
  Receive Date: 20181105
  Receipt Date: 20181105
  Transmission Date: 20190205
  Serious: No
  Sender: FDA-Public Use
  Company Number: US-TEVA-2018-US-970569

PATIENT
  Age: 80 Year
  Sex: Female

DRUGS (4)
  1. WARFARIN TARO [Concomitant]
  2. HYDROCHLOROTHIAZIDE. [Suspect]
     Active Substance: HYDROCHLOROTHIAZIDE
     Indication: BLOOD PRESSURE MEASUREMENT
     Route: 065
  3. METOPROLOL TEVA [Concomitant]
     Active Substance: METOPROLOL
  4. LISINOPRIL MYLAN [Concomitant]
     Active Substance: LISINOPRIL

REACTIONS (1)
  - Wrong technique in product usage process [Unknown]
